FAERS Safety Report 10362119 (Version 1)
Quarter: 2014Q1

REPORT INFORMATION
  Report Type: Spontaneous
  Country: US (occurrence: None)
  Receive Date: 20140306
  Receipt Date: 20140306
  Transmission Date: 20141002
  Serious: Yes (Life-Threatening, Hospitalization)
  Sender: FDA-Public Use
  Company Number: 163-21880-13043692

PATIENT
  Age: 55 Year
  Sex: Male
  Weight: 70.3 kg

DRUGS (7)
  1. REVLIMID (LENALIDOMIDE) (25 MILLIGRAM, CAPSULES) [Suspect]
     Indication: PLASMA CELL MYELOMA
     Route: 048
     Dates: start: 201011
  2. CLOTRIMAZOLE (CLOTRIMAZOLE) (CREAM) [Concomitant]
  3. ZOLPIDEM (ZOLPIDEM) (TABLETS) [Concomitant]
  4. ACYCLOVIR (ACICLOVIR) (TABLETS) [Concomitant]
  5. OMEPRAZOLE (OMEPRAZOLE) (CAPSULES) [Concomitant]
  6. GLUCOSAMINE-CHONDROITIN (GLUCOSAMINE W/CHONDROITIN SULFATE) (UNKNOWN) [Concomitant]
  7. VELCADE (BORTEZOMIB) (UNKNOWN) [Concomitant]

REACTIONS (1)
  - Pulmonary embolism [None]
